FAERS Safety Report 16264328 (Version 1)
Quarter: 2019Q2

REPORT INFORMATION
  Report Type: Spontaneous
  Country: US (occurrence: US)
  Receive Date: 20190501
  Receipt Date: 20190501
  Transmission Date: 20190711
  Serious: Yes (Hospitalization)
  Sender: FDA-Public Use
  Company Number: None

PATIENT
  Age: 71 Year
  Sex: Male

DRUGS (3)
  1. DEPAKOTE [Concomitant]
     Active Substance: DIVALPROEX SODIUM
     Dates: start: 20161104
  2. INGREZZA [Suspect]
     Active Substance: VALBENAZINE
     Indication: TARDIVE DYSKINESIA
     Route: 048
     Dates: start: 20190301, end: 20190321
  3. RISPERDAL [Concomitant]
     Active Substance: RISPERIDONE
     Dates: start: 20160805

REACTIONS (4)
  - Drooling [None]
  - Dysphagia [None]
  - Speech disorder [None]
  - Facial paralysis [None]

NARRATIVE: CASE EVENT DATE: 20190321
